FAERS Safety Report 4696043-3 (Version None)
Quarter: 2005Q2

REPORT INFORMATION
  Report Type: 
  Country: None (occurrence: None)
  Receive Date: 20050621
  Receipt Date: 20050602
  Transmission Date: 20051028
  Serious: Yes (Hospitalization, Other)
  Sender: FDA-Public Use
  Company Number: PHNU2005DE02145

PATIENT
  Age: 74 Year
  Sex: Female
  Weight: 75 kg

DRUGS (2)
  1. GLEEVEC [Suspect]
     Indication: GASTROINTESTINAL STROMAL TUMOUR
     Dosage: 400 MG, QD
     Route: 048
     Dates: start: 20050501
  2. GLEEVEC [Suspect]
     Dosage: 400 MG, QD
     Route: 048
     Dates: start: 20030101

REACTIONS (9)
  - CATARACT OPERATION [None]
  - DIARRHOEA [None]
  - FLATULENCE [None]
  - INTESTINAL OPERATION [None]
  - MUSCLE SPASMS [None]
  - NIGHT CRAMPS [None]
  - RECURRENT CANCER [None]
  - VISION BLURRED [None]
  - VISUAL ACUITY REDUCED [None]
